FAERS Safety Report 9461266 (Version 1)
Quarter: 2013Q3

REPORT INFORMATION
  Report Type: Spontaneous
  Country: US (occurrence: US)
  Receive Date: 20130816
  Receipt Date: 20130816
  Transmission Date: 20140515
  Serious: No
  Sender: FDA-Public Use
  Company Number: US-PFIZER INC-2013237343

PATIENT
  Age: 65 Year
  Sex: Male
  Weight: 117.91 kg

DRUGS (1)
  1. GABAPENTIN [Suspect]
     Indication: NEUROPATHY PERIPHERAL
     Dosage: 3600 MG, 2 CAP IN MORNING, 3 CAP IN AFTERNOON, 3 CAP IN EVENING AND 4 CAP IN NIGHT OF 300MG IN A DAY
     Route: 048

REACTIONS (4)
  - Off label use [Unknown]
  - Drug ineffective for unapproved indication [Unknown]
  - Hypoaesthesia [Not Recovered/Not Resolved]
  - Pain in extremity [Not Recovered/Not Resolved]
